FAERS Safety Report 19808695 (Version 1)
Quarter: 2021Q3

REPORT INFORMATION
  Report Type: Report from Study
  Country: CO (occurrence: CO)
  Receive Date: 20210908
  Receipt Date: 20210908
  Transmission Date: 20211014
  Serious: Yes (Other)
  Sender: FDA-Public Use
  Company Number: NVSC2021CO184123

PATIENT
  Sex: Male

DRUGS (1)
  1. TASIGNA [Suspect]
     Active Substance: NILOTINIB
     Indication: CHRONIC MYELOID LEUKAEMIA
     Dosage: 300 MG, Q12H
     Route: 048

REACTIONS (14)
  - Thrombosis [Unknown]
  - Toothache [Unknown]
  - Pain in jaw [Unknown]
  - Phlebitis [Unknown]
  - Sensory disturbance [Unknown]
  - Headache [Unknown]
  - Arthralgia [Unknown]
  - Eye inflammation [Unknown]
  - Sleep disorder [Unknown]
  - Pain [Unknown]
  - Rash macular [Unknown]
  - Back pain [Unknown]
  - Ear pain [Unknown]
  - Pain in extremity [Unknown]
